FAERS Safety Report 4715269-3 (Version None)
Quarter: 2005Q3

REPORT INFORMATION
  Report Type: 
  Country: None (occurrence: None)
  Receive Date: 20050715
  Receipt Date: 20050311
  Transmission Date: 20060218
  Serious: Yes (Hospitalization, Disabling)
  Sender: FDA-Public Use
  Company Number: US-MERCK-0503USA02679

PATIENT
  Age: 47 Year
  Sex: Female
  Weight: 95 kg

DRUGS (13)
  1. VIOXX [Suspect]
     Indication: BACK PAIN
     Route: 048
     Dates: start: 20030101, end: 20040901
  2. GLIPIZIDE [Concomitant]
     Route: 065
  3. LIPITOR [Concomitant]
     Route: 065
  4. HYDROCODONE BITARTRATE + ACETAMINOPHEN [Concomitant]
     Route: 065
     Dates: start: 20030704
  5. ZOLOFT [Concomitant]
     Route: 065
     Dates: start: 19970101
  6. TIZANIDINE HYDROCHLORIDE [Concomitant]
     Route: 065
  7. [THERAPY UNSPECIFIED] [Concomitant]
     Route: 065
  8. DURAGESIC-100 [Concomitant]
     Route: 065
  9. PAXIL [Concomitant]
     Route: 065
     Dates: start: 19970101
  10. ACCUPRIL [Concomitant]
     Route: 065
     Dates: start: 20040301
  11. TOPROL-XL [Concomitant]
     Route: 065
     Dates: start: 20040301
  12. HYDROCHLOROTHIAZIDE [Concomitant]
     Route: 065
     Dates: start: 20040301
  13. PLAVIX [Concomitant]
     Route: 065
     Dates: start: 20040301

REACTIONS (8)
  - ADVERSE EVENT [None]
  - BACK PAIN [None]
  - BIPOLAR DISORDER [None]
  - EMOTIONAL DISTRESS [None]
  - HOT FLUSH [None]
  - MYOCARDIAL INFARCTION [None]
  - OSTEOARTHRITIS [None]
  - PANIC DISORDER [None]
